FAERS Safety Report 24595219 (Version 2)
Quarter: 2024Q4

REPORT INFORMATION
  Report Type: Report from Study
  Country: PT (occurrence: PT)
  Receive Date: 20241108
  Receipt Date: 20241113
  Transmission Date: 20250115
  Serious: Yes (Other)
  Sender: ABBVIE
  Company Number: PT-ABBVIE-5993553

PATIENT
  Age: 77 Year
  Sex: Female

DRUGS (9)
  1. CARBIDOPA\LEVODOPA [Suspect]
     Active Substance: CARBIDOPA\LEVODOPA
     Indication: Parkinson^s disease
     Dosage: 240 MG + 12 MG?REQUENCY TEXT: LOAD:1.7;HI:0.77;BA:0.7;LOW:0.52;EX:0.3
     Route: 058
  2. CARBIDOPA\LEVODOPA [Suspect]
     Active Substance: CARBIDOPA\LEVODOPA
     Dosage: 240 MG + 12 MG. FREQUENCY: LOAD:1.7;HI:0.74;BA:0.7;LOW:0.52;EX:0.3.
     Route: 058
     Dates: start: 202410
  3. CARBIDOPA\LEVODOPA [Suspect]
     Active Substance: CARBIDOPA\LEVODOPA
     Dosage: 240 MG + 12 MG. FREQUENCY: LOAD:1.7;HI:0.6;BA:0.51;LOW:0.23;EX:0.15. LAST ADMIN DATE: 2024.
     Route: 058
     Dates: start: 20240626
  4. BUSCALMA [Concomitant]
     Indication: Product used for unknown indication
     Dosage: 2 TABLET. FIRST ADMIN DATE- BEFORE DUODOPA
     Route: 048
  5. CHOLECALCIFEROL [Concomitant]
     Active Substance: CHOLECALCIFEROL
     Indication: Product used for unknown indication
     Dosage: FIRST ADMIN DATE- AFTER DUODOPA
     Route: 048
  6. VENLAFAXINA MEPHA [Concomitant]
     Indication: Product used for unknown indication
     Dosage: 1 TABLET. FIRST ADMIN DATE: BEFORE DUODOPA.FREQUENCY: AT BREAKFAST.
     Route: 048
  7. RIVOTRIL [Concomitant]
     Active Substance: CLONAZEPAM
     Indication: Product used for unknown indication
     Dosage: 1 TABLET. FIRST ADMIN DATE: BEFORE DUODOPA. FREQUENCY: AT BEDTIME.
     Route: 048
  8. FOLIC ACID [Concomitant]
     Active Substance: FOLIC ACID
     Indication: Product used for unknown indication
     Dosage: 1 TABLET. FIRST ADMIN DATE: AFTER DUODOPA. FREQUENCY: AT LUNCH.
     Route: 048
  9. FEMARA [Concomitant]
     Active Substance: LETROZOLE
     Indication: Product used for unknown indication
     Dosage: 1 TABLET. FIRST ADMIN DATE: BEFORE DUODOPA. FREQUENCY: AT DINNER
     Route: 048

REACTIONS (7)
  - Urinary tract infection [Recovering/Resolving]
  - Parkinsonian gait [Not Recovered/Not Resolved]
  - Dysuria [Recovering/Resolving]
  - Oropharyngeal pain [Not Recovered/Not Resolved]
  - Gait disturbance [Not Recovered/Not Resolved]
  - Agitation [Recovering/Resolving]
  - Bladder discomfort [Recovering/Resolving]

NARRATIVE: CASE EVENT DATE: 20241001
